FAERS Safety Report 12428338 (Version 3)
Quarter: 2016Q4

REPORT INFORMATION
  Report Type: Spontaneous
  Country: US (occurrence: US)
  Receive Date: 20160602
  Receipt Date: 20161018
  Transmission Date: 20170207
  Serious: No
  Sender: FDA-Public Use
  Company Number: US-GLAXOSMITHKLINE-US2016GSK069877

PATIENT
  Sex: Female

DRUGS (2)
  1. TANZEUM [Suspect]
     Active Substance: ALBIGLUTIDE
     Indication: TYPE 2 DIABETES MELLITUS
     Dosage: 50 MG, WE
     Route: 042
     Dates: start: 2015, end: 20160321
  2. TANZEUM [Suspect]
     Active Substance: ALBIGLUTIDE
     Dosage: 50 MG, WE
     Route: 042
     Dates: start: 20160411, end: 20160814

REACTIONS (9)
  - Chapped lips [Recovered/Resolved]
  - Device use error [Unknown]
  - Laceration [Recovered/Resolved]
  - Skin fissures [Recovered/Resolved]
  - Fungal infection [Recovered/Resolved]
  - Weight decreased [Unknown]
  - Drug dose omission [Unknown]
  - Impaired healing [Recovered/Resolved]
  - Underdose [Unknown]

NARRATIVE: CASE EVENT DATE: 2015
